FAERS Safety Report 21810936 (Version 2)
Quarter: 2023Q1

REPORT INFORMATION
  Report Type: Report from Study
  Country: DE (occurrence: DE)
  Receive Date: 20230103
  Receipt Date: 20230317
  Transmission Date: 20230418
  Serious: Yes (Death, Other)
  Sender: FDA-Public Use
  Company Number: DE-GLAXOSMITHKLINE-DE2022GSK195581

PATIENT

DRUGS (1)
  1. FLUTICASONE FUROATE\UMECLIDINIUM BROMIDE\VILANTEROL TRIFENATATE [Suspect]
     Active Substance: FLUTICASONE FUROATE\UMECLIDINIUM BROMIDE\VILANTEROL TRIFENATATE
     Indication: Chronic obstructive pulmonary disease
     Dosage: SINGLEDOSE INHALER, METEREDDOSE INHALER
     Route: 055
     Dates: start: 20220406

REACTIONS (1)
  - Death [Fatal]

NARRATIVE: CASE EVENT DATE: 20220619
